FAERS Safety Report 24008718 (Version 2)
Quarter: 2025Q2

REPORT INFORMATION
  Report Type: Spontaneous
  Country: ES (occurrence: ES)
  Receive Date: 20240625
  Receipt Date: 20250630
  Transmission Date: 20250717
  Serious: Yes (Life-Threatening, Other)
  Sender: AUROBINDO
  Company Number: ES-AEMPS-1535538

PATIENT
  Age: 17 Year
  Sex: Female

DRUGS (1)
  1. ACETAMINOPHEN [Suspect]
     Active Substance: ACETAMINOPHEN
     Indication: Suicide attempt
     Route: 048
     Dates: start: 20240523

REACTIONS (3)
  - Drug-induced liver injury [Unknown]
  - Intentional overdose [Unknown]
  - Vomiting [Unknown]

NARRATIVE: CASE EVENT DATE: 20240523
